FAERS Safety Report 4659150-7 (Version None)
Quarter: 2005Q2

REPORT INFORMATION
  Report Type: 
  Country: None (occurrence: None)
  Receive Date: 20050511
  Receipt Date: 20050427
  Transmission Date: 20051028
  Serious: Yes (Other)
  Sender: FDA-Public Use
  Company Number: GB-JNJFOC-20041102159

PATIENT
  Sex: Female
  Weight: 74 kg

DRUGS (6)
  1. TRAMACET [Suspect]
     Dosage: 1 - 2 TABS QDS PRN
     Route: 049
  2. CELECOXIB [Concomitant]
  3. OMEPRAZOLE [Concomitant]
  4. GAVISCON [Concomitant]
  5. GAVISCON [Concomitant]
     Dosage: DOSE 10 - 20 MLS, OF MANY YEARS DURATION
  6. FUROSEMIDE [Concomitant]
     Dosage: OF MANY YEARS DURATION

REACTIONS (3)
  - ABDOMINAL PAIN [None]
  - DIZZINESS [None]
  - NERVOUS SYSTEM DISORDER [None]
